FAERS Safety Report 7958898-6 (Version None)
Quarter: 2011Q4

REPORT INFORMATION
  Report Type: 
  Country: None (occurrence: None)
  Receive Date: 20111206
  Receipt Date: 20111128
  Transmission Date: 20120403
  Serious: Yes (Life-Threatening, Hospitalization, Other)
  Sender: FDA-Public Use
  Company Number: CA-ASTELLAS-2011US007472

PATIENT

DRUGS (2)
  1. AMEVIVE [Suspect]
     Indication: PSORIASIS
     Dosage: 15 MG, WEEKLY
     Route: 030
     Dates: start: 20080326, end: 20080701
  2. HUMIRA [Concomitant]
     Indication: PSORIASIS
     Dosage: 40 MG, Q2W
     Route: 058
     Dates: start: 20080601, end: 20110601

REACTIONS (2)
  - RENAL FAILURE [None]
  - MYOCARDIAL INFARCTION [None]
